FAERS Safety Report 10034020 (Version 1)
Quarter: 2014Q1

REPORT INFORMATION
  Report Type: Spontaneous
  Country: US (occurrence: None)
  Receive Date: 20140324
  Receipt Date: 20140324
  Transmission Date: 20141002
  Serious: Yes (Hospitalization)
  Sender: FDA-Public Use
  Company Number: None

PATIENT
  Age: 70 Year
  Sex: Female

DRUGS (1)
  1. CLONAZEPAM [Suspect]
     Route: 048
     Dates: start: 20140315

REACTIONS (3)
  - Discomfort [None]
  - Agitation [None]
  - Anxiety [None]
